FAERS Safety Report 17381279 (Version 1)
Quarter: 2020Q1

REPORT INFORMATION
  Report Type: Spontaneous
  Country: US (occurrence: US)
  Receive Date: 20200206
  Receipt Date: 20200206
  Transmission Date: 20200409
  Serious: Yes (Death, Hospitalization)
  Sender: FDA-Public Use
  Company Number: None

PATIENT
  Age: 75 Year
  Sex: Male
  Weight: 74 kg

DRUGS (11)
  1. KETOCONAZOLE SHAMPOO [Concomitant]
     Active Substance: KETOCONAZOLE
  2. DOCUSATE/SENNA TABLET [Concomitant]
  3. NYSTATIN POWDER [Concomitant]
     Active Substance: NYSTATIN
  4. BUDESONIDE/FORMOTEROL INHALER [Concomitant]
  5. DURVALUMAB. [Suspect]
     Active Substance: DURVALUMAB
     Indication: LUNG NEOPLASM MALIGNANT
  6. DULOXETINE. [Concomitant]
     Active Substance: DULOXETINE
  7. LIDOCAINE OINTMENT [Concomitant]
     Active Substance: LIDOCAINE
  8. PRAVASTATIN TABLET [Concomitant]
     Active Substance: PRAVASTATIN
  9. NORTRIPTYLINE [Concomitant]
     Active Substance: NORTRIPTYLINE
  10. ALBUTEROL INHALER [Concomitant]
     Active Substance: ALBUTEROL
  11. CYANOCOBALAMIN TABLET [Concomitant]

REACTIONS (2)
  - Pneumonitis [None]
  - Myasthenic syndrome [None]

NARRATIVE: CASE EVENT DATE: 20191205
